FAERS Safety Report 13436452 (Version 6)
Quarter: 2017Q2

REPORT INFORMATION
  Report Type: Spontaneous
  Country: AR (occurrence: AR)
  Receive Date: 20170413
  Receipt Date: 20170609
  Transmission Date: 20170830
  Serious: Yes (Death, Hospitalization, Other)
  Sender: FDA-Public Use
  Company Number: AR-ABBVIE-17K-007-1942785-00

PATIENT
  Age: 54 Year
  Sex: Male
  Weight: 68 kg

DRUGS (3)
  1. HUMIRA [Suspect]
     Active Substance: ADALIMUMAB
     Indication: CROHN^S DISEASE
     Route: 058
     Dates: start: 20161228, end: 20170218
  2. AZATHIOPRINE. [Concomitant]
     Active Substance: AZATHIOPRINE
     Indication: PRODUCT USED FOR UNKNOWN INDICATION
  3. MESALAZINE [Concomitant]
     Active Substance: MESALAMINE
     Indication: PRODUCT USED FOR UNKNOWN INDICATION

REACTIONS (12)
  - Bone marrow disorder [Unknown]
  - Anaemia [Unknown]
  - Intestinal perforation [Fatal]
  - Haemoglobin decreased [Fatal]
  - Sepsis [Fatal]
  - Intestinal obstruction [Unknown]
  - Myelodysplastic syndrome [Unknown]
  - White blood cell count increased [Unknown]
  - Multiple organ dysfunction syndrome [Fatal]
  - General physical health deterioration [Fatal]
  - Pyrexia [Unknown]
  - Acute abdomen [Fatal]

NARRATIVE: CASE EVENT DATE: 201702
